FAERS Safety Report 4714583-5 (Version None)
Quarter: 2005Q3

REPORT INFORMATION
  Report Type: 
  Country: None (occurrence: None)
  Receive Date: 20050714
  Receipt Date: 20050714
  Transmission Date: 20060218
  Serious: No
  Sender: FDA-Public Use
  Company Number: None

PATIENT
  Age: 63 Year
  Sex: Male
  Weight: 65 kg

DRUGS (1)
  1. PROPLEX T [Suspect]
     Indication: HAEMORRHAGE
     Dosage: 2040 UNITS ONE TIME INTRAVENOU
     Route: 042
     Dates: start: 20050711, end: 20050711

REACTIONS (4)
  - CORONARY ARTERY OCCLUSION [None]
  - OPERATIVE HAEMORRHAGE [None]
  - PROCEDURAL COMPLICATION [None]
  - THROMBOSIS [None]
